FAERS Safety Report 4395739-0 (Version None)
Quarter: 2004Q3

REPORT INFORMATION
  Report Type: 
  Country: None (occurrence: None)
  Receive Date: 20040708
  Receipt Date: 20040629
  Transmission Date: 20050211
  Serious: Yes (Hospitalization)
  Sender: FDA-Public Use
  Company Number: 04-NIP00085

PATIENT
  Age: 68 Year
  Sex: Female

DRUGS (1)
  1. NIPENT [Suspect]
     Indication: HAIRY CELL LEUKAEMIA
     Dosage: 6.2 MG (1X PER 2 WK), INTRAVENOUS
     Route: 042
     Dates: start: 20030916, end: 20030930

REACTIONS (1)
  - ALVEOLITIS FIBROSING [None]
